FAERS Safety Report 8922498 (Version 3)
Quarter: 2013Q2

REPORT INFORMATION
  Report Type: Spontaneous
  Country: JP (occurrence: JP)
  Receive Date: 20121123
  Receipt Date: 20130624
  Transmission Date: 20140414
  Serious: Yes (Hospitalization, Other)
  Sender: FDA-Public Use
  Company Number: JP-ROCHE-1150016

PATIENT
  Age: 73 Year
  Sex: Male
  Weight: 48 kg

DRUGS (4)
  1. XELODA [Suspect]
     Indication: SMALL INTESTINE CARCINOMA METASTATIC
     Dosage: IT IS ONE ADMINISTERING WEEKLY HOLIDAY MEDICINE FOR TWO WEEKS.
     Route: 048
     Dates: start: 20121005, end: 20121017
  2. XELODA [Suspect]
     Indication: OFF LABEL USE
  3. AVASTIN [Suspect]
     Indication: SMALL INTESTINE CARCINOMA METASTATIC
     Route: 041
     Dates: start: 20121005, end: 20121005
  4. ELPLAT [Concomitant]
     Indication: SMALL INTESTINE CARCINOMA METASTATIC
     Dosage: DOSAGE IS UNCERTAIN.
     Route: 041
     Dates: start: 20121005, end: 20121005

REACTIONS (5)
  - Neutrophil count decreased [Recovered/Resolved]
  - Platelet count decreased [Recovered/Resolved]
  - Red blood cell count decreased [Recovered/Resolved]
  - Bone marrow failure [Not Recovered/Not Resolved]
  - Decreased appetite [Unknown]
